FAERS Safety Report 9188503 (Version 1)
Quarter: 2013Q1

REPORT INFORMATION
  Report Type: Spontaneous
  Country: GB (occurrence: GB)
  Receive Date: 20130325
  Receipt Date: 20130325
  Transmission Date: 20140127
  Serious: Yes (Other)
  Sender: FDA-Public Use
  Company Number: PHHY2013GB026325

PATIENT
  Age: 83 Year
  Sex: Female
  Weight: 83 kg

DRUGS (9)
  1. RANITIDINE [Suspect]
     Dosage: 150 MG, BID
     Route: 048
     Dates: start: 20121102, end: 20130104
  2. RIVAROXABAN [Concomitant]
  3. PREDNISOLONE [Concomitant]
  4. FELODIPINE [Concomitant]
  5. LEVOTHYROXINE [Concomitant]
  6. LOSARTAN [Concomitant]
  7. SOTALOL [Concomitant]
  8. SIMVASTATIN [Concomitant]
  9. DABIGATRAN [Concomitant]

REACTIONS (3)
  - Defaecation urgency [Unknown]
  - Faeces discoloured [Unknown]
  - Diarrhoea [Recovered/Resolved]
